FAERS Safety Report 13251995 (Version 1)
Quarter: 2017Q1

REPORT INFORMATION
  Report Type: Spontaneous
  Country: SE (occurrence: SE)
  Receive Date: 20170220
  Receipt Date: 20170220
  Transmission Date: 20170428
  Serious: Yes (Death)
  Sender: FDA-Public Use
  Company Number: SE-ALSI-201700058

PATIENT

DRUGS (3)
  1. FUROSEMIDE. [Concomitant]
     Active Substance: FUROSEMIDE
  2. MORPHINE SULFATE. [Concomitant]
     Active Substance: MORPHINE SULFATE
  3. MEDICAL OXYGEN [Suspect]
     Active Substance: OXYGEN
     Indication: OXYGEN SUPPLEMENTATION
     Route: 055

REACTIONS (4)
  - Oxygen saturation decreased [Fatal]
  - Wrong device used [Fatal]
  - Accidental underdose [Fatal]
  - Cardiac arrest [Fatal]
